FAERS Safety Report 10854815 (Version 2)
Quarter: 2015Q1

REPORT INFORMATION
  Report Type: Spontaneous
  Country: GB (occurrence: GB)
  Receive Date: 20150223
  Receipt Date: 20150305
  Transmission Date: 20150721
  Serious: Yes (Other)
  Sender: FDA-Public Use
  Company Number: GB-TEVA-540860ACC

PATIENT
  Sex: Male

DRUGS (1)
  1. OLANZAPINE. [Suspect]
     Active Substance: OLANZAPINE
     Indication: BIPOLAR DISORDER
     Dosage: 5 MILLIGRAM DAILY; OVER 5 YEARS, UNKNOWN; 5MG, DAILY IN THE MORNING
     Route: 065

REACTIONS (2)
  - Food craving [Unknown]
  - Type 2 diabetes mellitus [Unknown]
